FAERS Safety Report 7245978-6 (Version None)
Quarter: 2011Q1

REPORT INFORMATION
  Report Type: 
  Country: None (occurrence: None)
  Receive Date: 20110126
  Receipt Date: 20110114
  Transmission Date: 20110831
  Serious: Yes (Other)
  Sender: FDA-Public Use
  Company Number: PHHY2011BR03748

PATIENT
  Age: 69 Year
  Sex: Female

DRUGS (1)
  1. DIOVAN HCT [Suspect]
     Dosage: UNK, 160MG VALSARTAN AND 12.5MG HYDROCHLOROTHIAZIDE

REACTIONS (1)
  - CEREBROVASCULAR ACCIDENT [None]
